FAERS Safety Report 23813137 (Version 1)
Quarter: 2024Q2

REPORT INFORMATION
  Report Type: Spontaneous
  Country: ZA (occurrence: None)
  Receive Date: 20240503
  Receipt Date: 20240503
  Transmission Date: 20240716
  Serious: Yes (Hospitalization)
  Sender: FDA-Public Use
  Company Number: 2024A101902

PATIENT
  Age: 72 Year
  Sex: Female

DRUGS (6)
  1. DAPAGLIFLOZIN PROPANEDIOL [Suspect]
     Active Substance: DAPAGLIFLOZIN PROPANEDIOL
     Route: 048
  2. METFORMIN HYDROCHLORIDE\VILDAGLIPTIN [Concomitant]
     Active Substance: METFORMIN HYDROCHLORIDE\VILDAGLIPTIN
     Dosage: 50/850 MG
  3. METFORMIN HYDROCHLORIDE [Concomitant]
     Active Substance: METFORMIN HYDROCHLORIDE
  4. GLICLAZIDE [Concomitant]
     Active Substance: GLICLAZIDE
  5. AMLODIPINE\INDAPAMIDE [Concomitant]
     Active Substance: AMLODIPINE\INDAPAMIDE
     Dosage: 1.5/5 MG
  6. ZITHROLIDE [Concomitant]

REACTIONS (2)
  - Pneumonia [Unknown]
  - Diabetes mellitus inadequate control [Unknown]
